FAERS Safety Report 16071306 (Version 1)
Quarter: 2019Q1

REPORT INFORMATION
  Report Type: Spontaneous
  Country: US (occurrence: US)
  Receive Date: 20190314
  Receipt Date: 20190314
  Transmission Date: 20190418
  Serious: No
  Sender: FDA-Public Use
  Company Number: US-PFIZER INC-2019105158

PATIENT
  Age: 53 Year
  Sex: Female
  Weight: 80.29 kg

DRUGS (2)
  1. LYRICA [Suspect]
     Active Substance: PREGABALIN
     Indication: DYSTONIA
     Dosage: UNK UNK, 2X/DAY
     Route: 048
  2. LYRICA [Suspect]
     Active Substance: PREGABALIN
     Indication: TREMOR

REACTIONS (2)
  - Drug effective for unapproved indication [Unknown]
  - Expired product administered [Unknown]
